FAERS Safety Report 23836543 (Version 1)
Quarter: 2024Q2

REPORT INFORMATION
  Report Type: Spontaneous
  Country: EG (occurrence: EG)
  Receive Date: 20240509
  Receipt Date: 20240509
  Transmission Date: 20240715
  Serious: Yes (Hospitalization, Other)
  Sender: FDA-Public Use
  Company Number: EG-BAXTER-2024BAX017908

PATIENT
  Age: 20 Year
  Sex: Female

DRUGS (5)
  1. CYCLOPHOSPHAMIDE [Suspect]
     Active Substance: CYCLOPHOSPHAMIDE
     Indication: Bone marrow transplant
     Dosage: 4400 MG, EVERY 24 HOURS
     Route: 042
     Dates: start: 20240228
  2. CYCLOPHOSPHAMIDE [Suspect]
     Active Substance: CYCLOPHOSPHAMIDE
     Dosage: 4400 MG, EVERY 24 HOURS
     Route: 042
     Dates: start: 20240229
  3. CYCLOPHOSPHAMIDE [Suspect]
     Active Substance: CYCLOPHOSPHAMIDE
     Dosage: 2800 MG, EVERY 24 HOURS
     Route: 042
     Dates: start: 20240305
  4. CYCLOPHOSPHAMIDE [Suspect]
     Active Substance: CYCLOPHOSPHAMIDE
     Dosage: 2800 MG, EVERY 24 HOURS
     Route: 042
     Dates: start: 20240306
  5. PANTOPRAZOLE [Concomitant]
     Active Substance: PANTOPRAZOLE
     Indication: Prophylaxis against gastrointestinal ulcer
     Dosage: 40 MG, ONCE DAILY, VIAL
     Route: 042
     Dates: start: 20240222, end: 20240331

REACTIONS (3)
  - Haematoma [Recovered/Resolved]
  - Cystitis haemorrhagic [Recovered/Resolved]
  - Blood urine present [Recovered/Resolved]

NARRATIVE: CASE EVENT DATE: 20240309
